FAERS Safety Report 4799247-4 (Version None)
Quarter: 2005Q4

REPORT INFORMATION
  Report Type: 
  Country: None (occurrence: None)
  Receive Date: 20051013
  Receipt Date: 20050926
  Transmission Date: 20060501
  Serious: Yes (Hospitalization)
  Sender: FDA-Public Use
  Company Number: 218454

PATIENT
  Age: 35 Year
  Sex: Female

DRUGS (2)
  1. AVASTIN [Suspect]
     Indication: BREAST CANCER METASTATIC
     Dosage: INTRAVENOUS
     Route: 042
  2. ANTINEOPLASTIC AGENT NOS (ANTINEOPLASTIC AGENT NOS) [Concomitant]

REACTIONS (3)
  - MENINGORRHAGIA [None]
  - MIGRAINE [None]
  - RUPTURED CEREBRAL ANEURYSM [None]
